FAERS Safety Report 23579868 (Version 4)
Quarter: 2024Q3

REPORT INFORMATION
  Report Type: Spontaneous
  Country: US (occurrence: US)
  Receive Date: 20240229
  Receipt Date: 20240927
  Transmission Date: 20241016
  Serious: Yes (Hospitalization, Other)
  Sender: SANOFI AVENTIS
  Company Number: US-SA-SAC20240227000948

PATIENT
  Age: 46 Year
  Sex: Female
  Weight: 95.2 kg

DRUGS (39)
  1. DUPIXENT [Suspect]
     Active Substance: DUPILUMAB
     Indication: Asthma
     Dosage: 300 MG, QOW
     Route: 058
     Dates: start: 202308
  2. FAMOTIDINE [Concomitant]
     Active Substance: FAMOTIDINE
  3. FAMOTIDINE [Concomitant]
     Active Substance: FAMOTIDINE
  4. PREGABALIN [Concomitant]
     Active Substance: PREGABALIN
  5. PREVACID [Concomitant]
     Active Substance: LANSOPRAZOLE
  6. PREVACID [Concomitant]
     Active Substance: LANSOPRAZOLE
  7. ELIQUIS [Concomitant]
     Active Substance: APIXABAN
  8. ELIQUIS [Concomitant]
     Active Substance: APIXABAN
  9. TRELEGY ELLIPTA [Concomitant]
     Active Substance: FLUTICASONE FUROATE\UMECLIDINIUM BROMIDE\VILANTEROL TRIFENATATE
  10. TRELEGY ELLIPTA [Concomitant]
     Active Substance: FLUTICASONE FUROATE\UMECLIDINIUM BROMIDE\VILANTEROL TRIFENATATE
     Dosage: TRELEGY ELLIPTA 200-62.5 BLST W/DEV
  11. THEOPHYLLINE [Concomitant]
     Active Substance: THEOPHYLLINE
     Dosage: UNK, QD
  12. THEOPHYLLINE [Concomitant]
     Active Substance: THEOPHYLLINE
  13. ESCITALOPRAM OXALATE [Concomitant]
     Active Substance: ESCITALOPRAM OXALATE
  14. ESCITALOPRAM OXALATE [Concomitant]
     Active Substance: ESCITALOPRAM OXALATE
  15. TYLENOL EXTRA STRENGTH [Concomitant]
     Active Substance: ACETAMINOPHEN
  16. MONTELUKAST SODIUM [Concomitant]
     Active Substance: MONTELUKAST\MONTELUKAST SODIUM
  17. MONTELUKAST SODIUM [Concomitant]
     Active Substance: MONTELUKAST\MONTELUKAST SODIUM
  18. LORATADINE [Concomitant]
     Active Substance: LORATADINE
  19. LORATADINE [Concomitant]
     Active Substance: LORATADINE
  20. BUSPIRONE [Concomitant]
     Active Substance: BUSPIRONE HYDROCHLORIDE
  21. LEVOTHYROXINE SODIUM [Concomitant]
     Active Substance: LEVOTHYROXINE SODIUM
  22. VITAMIN B2 [Concomitant]
     Active Substance: RIBOFLAVIN
  23. PROBIOTICS NOS [Concomitant]
     Active Substance: PROBIOTICS NOS
  24. ALBUTEROL SULFATE [Concomitant]
     Active Substance: ALBUTEROL SULFATE
  25. PANTOPRAZOLE SODIUM [Concomitant]
     Active Substance: PANTOPRAZOLE SODIUM
  26. VITAMIN D3 [Concomitant]
     Active Substance: CHOLECALCIFEROL
  27. GABAPENTIN [Concomitant]
     Active Substance: GABAPENTIN
  28. METHOCARBAMOL [Concomitant]
     Active Substance: METHOCARBAMOL
  29. BUSPIRONE HCL [Concomitant]
     Active Substance: BUSPIRONE HYDROCHLORIDE
  30. TYLENOL ARTHRITIS PAIN [Concomitant]
     Active Substance: ACETAMINOPHEN
  31. MELATONIN [Concomitant]
     Active Substance: MELATONIN
  32. ALBUTEROL SULFATE [Concomitant]
     Active Substance: ALBUTEROL SULFATE
  33. DILTIAZEM [Concomitant]
     Active Substance: DILTIAZEM
  34. THEOPHYLLINE [Concomitant]
     Active Substance: THEOPHYLLINE
  35. OMEGA 3 + VITAMIN D [Concomitant]
  36. CALCIUM\VITAMIN D [Concomitant]
     Active Substance: CALCIUM\VITAMIN D
  37. SUPER CALCIUM + D [Concomitant]
  38. MELATONIN [Concomitant]
     Active Substance: MELATONIN
  39. LEVALBUTEROL [Concomitant]
     Active Substance: LEVALBUTEROL

REACTIONS (10)
  - Atrial fibrillation [Recovering/Resolving]
  - Asthma [Recovering/Resolving]
  - Cough [Unknown]
  - Stress [Unknown]
  - Anxiety [Unknown]
  - Lung disorder [Unknown]
  - Back pain [Unknown]
  - Insomnia [Unknown]
  - Injection site pain [Unknown]
  - Sleep disorder [Not Recovered/Not Resolved]

NARRATIVE: CASE EVENT DATE: 20240101
